FAERS Safety Report 17576951 (Version 1)
Quarter: 2020Q1

REPORT INFORMATION
  Report Type: Spontaneous
  Country: GB (occurrence: GB)
  Receive Date: 20200324
  Receipt Date: 20200324
  Transmission Date: 20200409
  Serious: Yes (Other)
  Sender: FDA-Public Use
  Company Number: GB-009507513-2003GBR007213

PATIENT
  Sex: Female

DRUGS (1)
  1. PREVYMIS [Suspect]
     Active Substance: LETERMOVIR
     Dosage: UNK

REACTIONS (3)
  - Cytomegalovirus viraemia [Unknown]
  - Cytomegalovirus infection [Unknown]
  - Glutamate dehydrogenase level abnormal [Unknown]
